FAERS Safety Report 8848887 (Version 2)
Quarter: 2012Q4

REPORT INFORMATION
  Report Type: Spontaneous
  Country: US (occurrence: None)
  Receive Date: 20121015
  Receipt Date: 20121031
  Transmission Date: 20130627
  Serious: Yes (Hospitalization)
  Sender: FDA-Public Use
  Company Number: DSA_60141_2012

PATIENT
  Sex: Female

DRUGS (1)
  1. XENAZINE [Suspect]
     Indication: DRUG USE FOR UNKNOWN INDICATION
     Route: 048
     Dates: end: 2012

REACTIONS (8)
  - Dehydration [None]
  - Hypertension [None]
  - Pancreatitis [None]
  - Nausea [None]
  - Vomiting [None]
  - Renal failure [None]
  - Urinary tract infection [None]
  - Pulmonary oedema [None]
